FAERS Safety Report 17333769 (Version 1)
Quarter: 2020Q1

REPORT INFORMATION
  Report Type: Spontaneous
  Country: CA (occurrence: CA)
  Receive Date: 20200128
  Receipt Date: 20200128
  Transmission Date: 20200409
  Serious: Yes (Other)
  Sender: FDA-Public Use
  Company Number: CA-CURIUM-200300205

PATIENT

DRUGS (2)
  1. TECHNESCAN PYP [Suspect]
     Active Substance: TECHNETIUM TC-99M PYROPHOSPHATE
     Indication: MULTIPLE GATED ACQUISITION SCAN
     Route: 042
     Dates: start: 20030606, end: 20030606
  2. PERTECHNETATE (99MTC) SODIUM (ANOTHER MANUFACTURER) [Concomitant]
     Indication: MULTIPLE GATED ACQUISITION SCAN
     Route: 042
     Dates: start: 20030606, end: 20030606

REACTIONS (4)
  - Swelling face [Recovered/Resolved]
  - Pharyngeal swelling [Recovered/Resolved]
  - Swollen tongue [Recovered/Resolved]
  - Urticaria [Recovered/Resolved]
